FAERS Safety Report 9553891 (Version 1)
Quarter: 2013Q3

REPORT INFORMATION
  Report Type: Spontaneous
  Country: IT (occurrence: IT)
  Receive Date: 20130925
  Receipt Date: 20130925
  Transmission Date: 20140515
  Serious: Yes (Other)
  Sender: FDA-Public Use
  Company Number: IT-JNJFOC-20130910474

PATIENT
  Age: 69 Year
  Sex: Female

DRUGS (3)
  1. INFLIXIMAB, RECOMBINANT [Suspect]
     Indication: INFLAMMATION
     Route: 042
     Dates: start: 2007
  2. METHOTREXATE [Concomitant]
     Indication: INFLAMMATION
     Route: 048
  3. PREDNISONE [Concomitant]
     Indication: INFLAMMATION
     Route: 065

REACTIONS (2)
  - Inflammation [Recovered/Resolved]
  - Off label use [Unknown]
